FAERS Safety Report 5317268-X (Version None)
Quarter: 2007Q2

REPORT INFORMATION
  Report Type: 
  Country: None (occurrence: None)
  Receive Date: 20070504
  Receipt Date: 20070423
  Transmission Date: 20071010
  Serious: Yes (Death, Hospitalization)
  Sender: FDA-Public Use
  Company Number: FR-PFIZER INC-2007032756

PATIENT
  Age: 68 Year
  Sex: Female
  Weight: 45 kg

DRUGS (8)
  1. LYRICA [Suspect]
     Route: 048
     Dates: start: 20070316, end: 20070320
  2. MORPHINE [Suspect]
     Route: 058
     Dates: start: 20070205, end: 20070320
  3. LARGACTIL [Suspect]
     Dosage: TEXT:9 DROPS
     Route: 048
     Dates: start: 20070312, end: 20070320
  4. LAROXYL [Suspect]
     Dosage: TEXT:15 INTAKES
     Route: 048
     Dates: start: 20070302, end: 20070320
  5. ANASTROZOLE [Concomitant]
  6. VERAPAMIL [Concomitant]
  7. NEXIUM [Concomitant]
  8. DIGOXIN [Concomitant]

REACTIONS (4)
  - ALTERED STATE OF CONSCIOUSNESS [None]
  - GENERAL PHYSICAL HEALTH DETERIORATION [None]
  - MUSCLE TWITCHING [None]
  - SOMNOLENCE [None]
